FAERS Safety Report 20016722 (Version 1)
Quarter: 2021Q4

REPORT INFORMATION
  Report Type: Spontaneous
  Country: US (occurrence: None)
  Receive Date: 20211104
  Receipt Date: 20211104
  Transmission Date: 20220303
  Serious: No
  Sender: FDA-Public Use
  Company Number: None

PATIENT
  Age: 45 Year
  Sex: Female

DRUGS (1)
  1. TALTZ [Suspect]
     Active Substance: IXEKIZUMAB
     Indication: Palmoplantar pustulosis
     Dosage: FREQUENCY : MONTHLY;?
     Route: 058
     Dates: start: 202102

REACTIONS (1)
  - COVID-19 [None]
